FAERS Safety Report 11430908 (Version 1)
Quarter: 2015Q3

REPORT INFORMATION
  Report Type: Spontaneous
  Country: US (occurrence: US)
  Receive Date: 20150828
  Receipt Date: 20150828
  Transmission Date: 20151125
  Serious: No
  Sender: FDA-Public Use
  Company Number: PHEH2014US018826

PATIENT
  Age: 62 Year
  Sex: Female

DRUGS (3)
  1. ACTONEL [Suspect]
     Active Substance: RISEDRONATE SODIUM
     Dosage: UNK UKN, UNK
  2. VIVELLE DOT [Suspect]
     Active Substance: ESTRADIOL
     Indication: OSTEOPOROSIS
     Dosage: 0.025 UKN, UNK
     Dates: end: 201312
  3. MINIVELLE [Suspect]
     Active Substance: ESTRADIOL
     Dosage: UNK UKN, UNK
     Dates: start: 201312

REACTIONS (6)
  - Thyroid disorder [Unknown]
  - Nephrolithiasis [Unknown]
  - Vaginal haemorrhage [Unknown]
  - Weight decreased [Unknown]
  - Renal disorder [Unknown]
  - Malaise [Unknown]
